FAERS Safety Report 8952273 (Version 1)
Quarter: 2012Q4

REPORT INFORMATION
  Report Type: 
  Country: AU (occurrence: AU)
  Receive Date: 20121205
  Receipt Date: 20121205
  Transmission Date: 20130627
  Serious: Yes (Hospitalization)
  Sender: FDA-Public Use
  Company Number: AU-MERCK-1211AUS012608

PATIENT
  Age: 62 Year
  Sex: Male
  Weight: 69.6 kg

DRUGS (3)
  1. EZETIMIBE [Suspect]
     Dosage: 10 milligram daily
     Route: 048
     Dates: start: 20110215, end: 20120207
  2. ASPIRIN [Concomitant]
  3. CALTRATE [Concomitant]

REACTIONS (6)
  - Fall [Not Recovered/Not Resolved]
  - Muscular weakness [Not Recovered/Not Resolved]
  - Muscle spasms [Not Recovered/Not Resolved]
  - Alanine aminotransferase increased [Not Recovered/Not Resolved]
  - Aspartate aminotransferase increased [Not Recovered/Not Resolved]
  - Blood creatine phosphokinase increased [Not Recovered/Not Resolved]
